FAERS Safety Report 13118546 (Version 7)
Quarter: 2017Q2

REPORT INFORMATION
  Report Type: Report from Study
  Country: US (occurrence: US)
  Receive Date: 20170116
  Receipt Date: 20170427
  Transmission Date: 20170830
  Serious: Yes (Hospitalization, Other)
  Sender: FDA-Public Use
  Company Number: US-GILEAD-2017-0253156

PATIENT
  Age: 48 Year
  Sex: Female
  Weight: 49.89 kg

DRUGS (8)
  1. SILDENAFIL. [Concomitant]
     Active Substance: SILDENAFIL
  2. DIGOXIN. [Concomitant]
     Active Substance: DIGOXIN
  3. FUROSEMIDE. [Concomitant]
     Active Substance: FUROSEMIDE
  4. ADEMPAS [Concomitant]
     Active Substance: RIOCIGUAT
  5. COUMADIN [Concomitant]
     Active Substance: WARFARIN SODIUM
  6. AMBRISENTAN [Suspect]
     Active Substance: AMBRISENTAN
     Indication: PULMONARY HYPERTENSION
     Dosage: 10 MG, QD
     Route: 048
     Dates: start: 20120110
  7. VELETRI [Concomitant]
     Active Substance: EPOPROSTENOL
  8. SPIRONOLACTONE. [Concomitant]
     Active Substance: SPIRONOLACTONE

REACTIONS (13)
  - Infection [Recovered/Resolved]
  - Cystitis [Recovering/Resolving]
  - Pain [Recovered/Resolved]
  - Pulmonary hypertension [Recovered/Resolved]
  - Pneumonia [Recovered/Resolved]
  - Vomiting [Recovered/Resolved]
  - Dyspnoea [Recovered/Resolved]
  - Kidney infection [Recovered/Resolved]
  - Pancreatitis [Recovered/Resolved]
  - Hypotension [Recovered/Resolved]
  - Dehydration [Recovered/Resolved]
  - Fatigue [Recovered/Resolved]
  - Tooth abscess [Recovered/Resolved]

NARRATIVE: CASE EVENT DATE: 201703
